FAERS Safety Report 7433160-9 (Version None)
Quarter: 2011Q2

REPORT INFORMATION
  Report Type: 
  Country: None (occurrence: None)
  Receive Date: 20110415
  Receipt Date: 20110401
  Transmission Date: 20111010
  Serious: Yes (Hospitalization)
  Sender: FDA-Public Use
  Company Number: AE 2011-058

PATIENT
  Age: 32 Year
  Sex: Female
  Weight: 50 kg

DRUGS (3)
  1. PRIALT [Suspect]
     Indication: PAIN
     Dosage: 0.025 UG/HR INTRATHECAL
     Route: 037
     Dates: start: 20110101, end: 20110206
  2. BUPIVACAINE HCL [Suspect]
     Indication: PAIN
     Dosage: 0.46 MG/HR INTRATHECAL
     Route: 037
     Dates: start: 20060101
  3. MORPHINE SULFATE [Suspect]
     Indication: PAIN
     Dosage: 0.46 MG/HR INTRATHECAL
     Route: 037
     Dates: start: 20060101

REACTIONS (1)
  - HYPERAESTHESIA [None]
